FAERS Safety Report 9642831 (Version 1)
Quarter: 2013Q4

REPORT INFORMATION
  Report Type: Spontaneous
  Country: GB (occurrence: GB)
  Receive Date: 20131024
  Receipt Date: 20131024
  Transmission Date: 20140711
  Serious: Yes (Other)
  Sender: FDA-Public Use
  Company Number: GB-TEVA-438272ISR

PATIENT
  Age: 78 Year
  Sex: Female
  Weight: 67.12 kg

DRUGS (4)
  1. AMLODIPINE [Suspect]
     Indication: HYPERTENSION
     Dosage: PILLULES
     Route: 048
     Dates: start: 201306, end: 201308
  2. BEZAFIBRATE [Suspect]
     Indication: BLOOD CHOLESTEROL INCREASED
     Route: 048
     Dates: start: 201307, end: 201308
  3. ASPIRIN [Concomitant]
  4. IMODIUM [Concomitant]

REACTIONS (4)
  - Muscular weakness [Recovered/Resolved]
  - Fatigue [Recovered/Resolved]
  - Weight increased [Not Recovered/Not Resolved]
  - Disturbance in attention [Recovered/Resolved]
